FAERS Safety Report 5358028-3 (Version None)
Quarter: 2007Q2

REPORT INFORMATION
  Report Type: 
  Country: None (occurrence: None)
  Receive Date: 20070530
  Receipt Date: 20061127
  Transmission Date: 20071010
  Serious: Yes (Other)
  Sender: FDA-Public Use
  Company Number: US200611004214

PATIENT
  Age: 17 Year
  Sex: Female
  Weight: 42.6 kg

DRUGS (4)
  1. ZYPREXA [Suspect]
     Indication: SCHIZOPHRENIA
     Dosage: 30 MG
     Dates: end: 20061001
  2. ZYPREXA [Suspect]
     Indication: SCHIZOPHRENIA
     Dosage: 30 MG
     Dates: start: 20050101
  3. HALDOL SOLUTAB [Concomitant]
  4. SEROQUEL [Concomitant]

REACTIONS (2)
  - PRESCRIBED OVERDOSE [None]
  - WEIGHT INCREASED [None]
